FAERS Safety Report 19724393 (Version 1)
Quarter: 2021Q3

REPORT INFORMATION
  Report Type: Spontaneous
  Country: US (occurrence: US)
  Receive Date: 20210819
  Receipt Date: 20210819
  Transmission Date: 20211014
  Serious: No
  Sender: FDA-Public Use
  Company Number: US-AMNEAL PHARMACEUTICALS-2021-AMRX-01330

PATIENT
  Sex: Male

DRUGS (14)
  1. METHYLPREDNISOLONE SODIUM SUCCINATE. [Suspect]
     Active Substance: METHYLPREDNISOLONE SODIUM SUCCINATE
     Indication: URTICARIA
     Dosage: 125MG
     Route: 065
     Dates: start: 20210407, end: 20210407
  2. PREDNISONE. [Concomitant]
     Active Substance: PREDNISONE
     Indication: URTICARIA
     Dosage: 60 MILLIGRAM FOR 2 DAYS, TAPER DOWN OVER 6 DAYS
     Route: 065
     Dates: start: 20210408
  3. HYDROXYZINE PAMOATE IR [Suspect]
     Active Substance: HYDROXYZINE PAMOATE
     Indication: URTICARIA
     Dosage: 1 CAPSULES, 3 /DAY
     Route: 048
     Dates: start: 20210408
  4. DIPHENHYDRAMINE. [Suspect]
     Active Substance: DIPHENHYDRAMINE
     Indication: URTICARIA
     Dosage: 50 MILLIGRAM
     Route: 065
     Dates: start: 20210407, end: 20210407
  5. VALTREX [Concomitant]
     Active Substance: VALACYCLOVIR HYDROCHLORIDE
     Indication: ORAL HERPES
     Dosage: 2 TABLETS WHEN FELT COLD SORES
     Route: 065
  6. SODIUM CHLORIDE. [Concomitant]
     Active Substance: SODIUM CHLORIDE
     Indication: PRODUCT USED FOR UNKNOWN INDICATION
     Dosage: 500ML BOLUS
     Route: 065
     Dates: start: 20210408
  7. DOXEPIN HYDROCHLORIDE. [Suspect]
     Active Substance: DOXEPIN HYDROCHLORIDE
     Indication: PRURITUS
  8. DOXEPIN HYDROCHLORIDE. [Suspect]
     Active Substance: DOXEPIN HYDROCHLORIDE
     Indication: URTICARIA
     Dosage: 10 MILLIGRAM, QD, EVERY NIGHT
     Route: 065
     Dates: start: 20210407
  9. DIPHENHYDRAMINE. [Suspect]
     Active Substance: DIPHENHYDRAMINE
     Indication: PRURITUS
     Dosage: 50 MILLIGRAM
     Route: 065
     Dates: start: 20210408
  10. METHYLPREDNISOLONE SODIUM SUCCINATE. [Suspect]
     Active Substance: METHYLPREDNISOLONE SODIUM SUCCINATE
     Indication: PRURITUS
     Dosage: 60MG
     Route: 065
     Dates: start: 20210408
  11. HYDROXYZINE PAMOATE IR [Suspect]
     Active Substance: HYDROXYZINE PAMOATE
     Indication: PRURITUS
  12. FAMOTIDINE. [Suspect]
     Active Substance: FAMOTIDINE
     Indication: URTICARIA
     Dosage: UNK
     Route: 048
     Dates: start: 20210408
  13. PREDNISONE. [Concomitant]
     Active Substance: PREDNISONE
     Indication: PRURITUS
  14. FAMOTIDINE. [Suspect]
     Active Substance: FAMOTIDINE
     Indication: PRURITUS
     Dosage: UNK
     Route: 048

REACTIONS (1)
  - Therapeutic response decreased [Unknown]

NARRATIVE: CASE EVENT DATE: 202104
